FAERS Safety Report 6462919-X (Version None)
Quarter: 2009Q4

REPORT INFORMATION
  Report Type: 
  Country: None (occurrence: None)
  Receive Date: 20091123
  Receipt Date: 20091109
  Transmission Date: 20100525
  Serious: Yes (Death, Hospitalization)
  Sender: FDA-Public Use
  Company Number: 2009AC000387

PATIENT
  Age: 66 Year
  Sex: Female
  Weight: 86.1834 kg

DRUGS (25)
  1. DIGOXIN [Suspect]
     Indication: CARDIAC FAILURE CHRONIC
     Dosage: 0.125 MG;QD;PO
     Route: 048
     Dates: start: 19980101
  2. AMIODARONE HCL [Concomitant]
  3. ARIMIDEX [Concomitant]
  4. ASPIRIN [Concomitant]
  5. ALPRAZOLAM [Concomitant]
  6. HYDROCODONE [Concomitant]
  7. ALLOPURINOL [Concomitant]
  8. ALBUTEROL [Concomitant]
  9. NITROGLYCERIN [Concomitant]
  10. MECLOPRAMIDE [Concomitant]
  11. CLONIDINE [Concomitant]
  12. COREG [Concomitant]
  13. GLIPIZIDE [Concomitant]
  14. IMDUR [Concomitant]
  15. LASIX [Concomitant]
  16. LIPITOR [Concomitant]
  17. LORTAB [Concomitant]
  18. ACCUPRIL [Concomitant]
  19. COMBIVENT [Concomitant]
  20. VITAMINS [Concomitant]
  21. MEXILETINE HYDROCHLORIDE [Concomitant]
  22. POTASSIUM [Concomitant]
  23. ZENICAL [Concomitant]
  24. VIOXX [Concomitant]
  25. XANAX [Concomitant]

REACTIONS (42)
  - ABDOMINAL PAIN LOWER [None]
  - ANAEMIA OF CHRONIC DISEASE [None]
  - ANHEDONIA [None]
  - ANXIETY [None]
  - BACK PAIN [None]
  - BREAST CANCER FEMALE [None]
  - BREAST CELLULITIS [None]
  - CARDIAC ARREST [None]
  - CARDIAC FAILURE CONGESTIVE [None]
  - CONDITION AGGRAVATED [None]
  - CORONARY ARTERY DISEASE [None]
  - DEPRESSION [None]
  - DIABETES MELLITUS [None]
  - DRY MOUTH [None]
  - DYSLIPIDAEMIA [None]
  - DYSPHAGIA [None]
  - ECONOMIC PROBLEM [None]
  - HYPERHIDROSIS [None]
  - HYPERTENSION [None]
  - INFLAMMATION [None]
  - LEUKOCYTOSIS [None]
  - LYMPHADENOPATHY [None]
  - MALAISE [None]
  - MENTAL DISORDER [None]
  - METASTASES TO LYMPH NODES [None]
  - METASTASIS [None]
  - MULTIPLE INJURIES [None]
  - MUSCLE SPASMS [None]
  - MYOCARDIAL INFARCTION [None]
  - NAUSEA [None]
  - PAIN [None]
  - PAIN IN EXTREMITY [None]
  - PNEUMONIA [None]
  - PULMONARY OEDEMA [None]
  - RENAL FAILURE CHRONIC [None]
  - RENAL IMPAIRMENT [None]
  - RESPIRATORY DISTRESS [None]
  - SINUS TACHYCARDIA [None]
  - SMALL INTESTINAL OBSTRUCTION [None]
  - SUDDEN CARDIAC DEATH [None]
  - THERAPEUTIC AGENT TOXICITY [None]
  - VENTRICULAR TACHYCARDIA [None]
